FAERS Safety Report 11661266 (Version 1)
Quarter: 2015Q4

REPORT INFORMATION
  Report Type: Spontaneous
  Country: GB (occurrence: GB)
  Receive Date: 20151026
  Receipt Date: 20151026
  Transmission Date: 20160304
  Serious: Yes (Hospitalization, Other)
  Sender: FDA-Public Use
  Company Number: PHHY2015GB136898

PATIENT
  Age: 68 Year
  Sex: Male
  Weight: 73 kg

DRUGS (16)
  1. SERTRALINE [Suspect]
     Active Substance: SERTRALINE HYDROCHLORIDE
     Indication: DEPRESSION
     Dosage: 50 MG, QD
     Route: 048
  2. ACETYLSALICYLIC ACID [Suspect]
     Active Substance: ASPIRIN
     Indication: MYOCARDIAL ISCHAEMIA
     Dosage: 75 MG, QD
     Route: 048
  3. FOSTAIR [Concomitant]
     Active Substance: BECLOMETHASONE\FORMOTEROL
     Indication: CHRONIC OBSTRUCTIVE PULMONARY DISEASE
     Dosage: 2 DF, BID
     Route: 055
  4. DALTEPARIN SODIUM [Suspect]
     Active Substance: DALTEPARIN SODIUM
     Indication: THROMBOSIS PROPHYLAXIS
     Dosage: 5000 IU, QD
     Route: 058
  5. SIMVASTATIN. [Concomitant]
     Active Substance: SIMVASTATIN
     Indication: MYOCARDIAL ISCHAEMIA
     Dosage: 40 MG, QD
     Route: 048
  6. DIPROBASE                          /01132701/ [Concomitant]
     Indication: DRY SKIN
     Route: 061
  7. FUROSEMIDE. [Concomitant]
     Active Substance: FUROSEMIDE
     Indication: CARDIAC FAILURE CONGESTIVE
     Dosage: 20 MG, QD
     Route: 048
  8. SODIUM CHLORIDE. [Concomitant]
     Active Substance: SODIUM CHLORIDE
     Indication: CHRONIC OBSTRUCTIVE PULMONARY DISEASE
     Dosage: 1 DF, QID
     Route: 050
  9. SALBUTAMOL [Concomitant]
     Active Substance: ALBUTEROL
     Indication: CHRONIC OBSTRUCTIVE PULMONARY DISEASE
     Dosage: 200 UG, UNK
  10. CYCLIZINE [Concomitant]
     Active Substance: CYCLIZINE
     Indication: NAUSEA
     Dosage: 50 MG, UNK
     Route: 050
  11. TIOTROPIUM BROMIDE [Concomitant]
     Active Substance: TIOTROPIUM BROMIDE
     Indication: CHRONIC OBSTRUCTIVE PULMONARY DISEASE
     Dosage: 18 UG, QD
     Route: 055
  12. COLISTIN [Concomitant]
     Active Substance: COLISTIN
     Indication: PRODUCT USED FOR UNKNOWN INDICATION
     Dosage: 2000000 IU, UNK
     Route: 065
  13. UNIPHYLLIN CONTINUS [Concomitant]
     Active Substance: THEOPHYLLINE ANHYDROUS
     Indication: CHRONIC OBSTRUCTIVE PULMONARY DISEASE
     Dosage: 200 MG, BID
     Route: 048
  14. BISOPROLOL [Concomitant]
     Active Substance: BISOPROLOL
     Indication: CARDIAC FAILURE CONGESTIVE
     Dosage: 5 MG, QD
     Route: 048
  15. CARBOCISTEINE [Suspect]
     Active Substance: CARBOCYSTEINE
     Indication: CHRONIC OBSTRUCTIVE PULMONARY DISEASE
     Dosage: 750 MG, BID
     Route: 048
  16. AZITHROMYCIN [Concomitant]
     Active Substance: AZITHROMYCIN ANHYDROUS
     Indication: PRODUCT USED FOR UNKNOWN INDICATION
     Dosage: 250 MG, QD
     Route: 048

REACTIONS (6)
  - Hypotension [Unknown]
  - Poor quality sleep [Unknown]
  - Upper gastrointestinal haemorrhage [Recovered/Resolved with Sequelae]
  - Malaise [Unknown]
  - Pallor [Unknown]
  - Melaena [Unknown]

NARRATIVE: CASE EVENT DATE: 20150912
